FAERS Safety Report 16014255 (Version 1)
Quarter: 2019Q1

REPORT INFORMATION
  Report Type: Report from Study
  Country: FR (occurrence: FR)
  Receive Date: 20190227
  Receipt Date: 20190227
  Transmission Date: 20190418
  Serious: Yes (Hospitalization)
  Sender: FDA-Public Use
  Company Number: FR-GILEAD-2017-0306809

PATIENT

DRUGS (2)
  1. TIVICAY [Suspect]
     Active Substance: DOLUTEGRAVIR SODIUM
     Indication: HIV INFECTION
     Dosage: UNK
     Route: 065
  2. EMTRICITABINE/TENOFOVIR DISOPROXIL FUMARATE [Suspect]
     Active Substance: EMTRICITABINE\TENOFOVIR DISOPROXIL FUMARATE
     Indication: HIV INFECTION
     Dosage: UNK
     Route: 065

REACTIONS (14)
  - Rhinorrhoea [Recovered/Resolved]
  - Fatigue [Not Recovered/Not Resolved]
  - Nightmare [Not Recovered/Not Resolved]
  - Anxiety [Recovered/Resolved]
  - Claustrophobia [Recovered/Resolved]
  - Abnormal dreams [Unknown]
  - Disturbance in attention [Recovered/Resolved]
  - Obsessive-compulsive disorder [Unknown]
  - Malaise [Recovered/Resolved]
  - Amnesia [Recovered/Resolved]
  - Blood pressure abnormal [Recovered/Resolved]
  - Renal impairment [Unknown]
  - Feeling drunk [Not Recovered/Not Resolved]
  - Agoraphobia [Recovered/Resolved]
